FAERS Safety Report 16372101 (Version 2)
Quarter: 2019Q2

REPORT INFORMATION
  Report Type: Spontaneous
  Country: BR (occurrence: BR)
  Receive Date: 20190530
  Receipt Date: 20190605
  Transmission Date: 20190711
  Serious: Yes (Hospitalization, Other)
  Sender: FDA-Public Use
  Company Number: BR-PFIZER INC-2019223090

PATIENT
  Age: 64 Year
  Sex: Female
  Weight: 55 kg

DRUGS (4)
  1. IBRANCE [Suspect]
     Active Substance: PALBOCICLIB
     Indication: CHEMOTHERAPY
     Dosage: UNK (TOOK THREE PACKAGES)
  2. FULVESTRANT. [Suspect]
     Active Substance: FULVESTRANT
     Indication: CHEMOTHERAPY
     Dosage: UNK (TOOK TWO PACKAGES)
  3. MORPHINE [Concomitant]
     Active Substance: MORPHINE
  4. BROMOPRID [Concomitant]

REACTIONS (4)
  - Bone pain [Not Recovered/Not Resolved]
  - Platelet count decreased [Recovering/Resolving]
  - Neoplasm progression [Unknown]
  - Dengue fever [Recovering/Resolving]
